FAERS Safety Report 18692437 (Version 1)
Quarter: 2021Q1

REPORT INFORMATION
  Report Type: Spontaneous
  Country: US (occurrence: US)
  Receive Date: 20210103
  Receipt Date: 20210103
  Transmission Date: 20210419
  Serious: Yes (Other)
  Sender: FDA-Public Use
  Company Number: US-BEH-2020126754

PATIENT
  Age: 18 Year
  Sex: Female

DRUGS (2)
  1. BERINERT [Suspect]
     Active Substance: HUMAN C1-ESTERASE INHIBITOR
     Indication: HEREDITARY ANGIOEDEMA
     Dosage: 1300 INTERNATIONAL UNIT, PRN, DAILY
     Route: 042
     Dates: start: 201802
  2. BERINERT [Suspect]
     Active Substance: HUMAN C1-ESTERASE INHIBITOR
     Indication: HEREDITARY ANGIOEDEMA
     Dosage: 1300 INTERNATIONAL UNIT, PRN, DAILY
     Route: 042
     Dates: start: 201802

REACTIONS (1)
  - Drug ineffective [Unknown]
